FAERS Safety Report 24545418 (Version 1)
Quarter: 2024Q4

REPORT INFORMATION
  Report Type: Spontaneous
  Country: US (occurrence: None)
  Receive Date: 20241023
  Receipt Date: 20241023
  Transmission Date: 20250115
  Serious: Yes (unspecified)
  Sender: Public
  Company Number: None

PATIENT
  Age: 3 Year
  Sex: Male
  Weight: 13.7 kg

DRUGS (1)
  1. GAMUNEX-C [Suspect]
     Active Substance: HUMAN IMMUNOGLOBULIN G
     Indication: Kawasaki^s disease
     Route: 042
     Dates: start: 20241015, end: 20241022

REACTIONS (3)
  - Hypothermia [None]
  - Bradycardia [None]
  - Infusion related reaction [None]

NARRATIVE: CASE EVENT DATE: 20241021
